FAERS Safety Report 5552896-8 (Version None)
Quarter: 2007Q4

REPORT INFORMATION
  Report Type: 
  Country: None (occurrence: None)
  Receive Date: 20071211
  Receipt Date: 20071127
  Transmission Date: 20080405
  Serious: Yes (Hospitalization)
  Sender: FDA-Public Use
  Company Number: B0498760A

PATIENT
  Age: 6 Year
  Sex: Male
  Weight: 21.9541 kg

DRUGS (6)
  1. ALBUTEROL [Suspect]
     Indication: ASTHMA
     Dosage: SEE DOSAGE TEXT / INHALED
     Route: 055
  2. ADRENALINE [Concomitant]
  3. IPRATROPIUM BROMIDE [Concomitant]
  4. DEXAMETHASONE TAB [Concomitant]
  5. MAGNEISUM SULFATE [Concomitant]
  6. SODIUM CHLORIDE [Concomitant]

REACTIONS (10)
  - BLOOD GLUCOSE INCREASED [None]
  - CHEST DISCOMFORT [None]
  - COUGH [None]
  - GLUCOSE URINE PRESENT [None]
  - HEART RATE INCREASED [None]
  - METABOLIC ACIDOSIS [None]
  - OXYGEN SATURATION DECREASED [None]
  - RESPIRATORY DISTRESS [None]
  - TACHYPNOEA [None]
  - WHEEZING [None]
